FAERS Safety Report 4544909-7 (Version None)
Quarter: 2005Q1

REPORT INFORMATION
  Report Type: 
  Country: None (occurrence: None)
  Receive Date: 20050104
  Receipt Date: 20041220
  Transmission Date: 20050727
  Serious: Yes (Disabling)
  Sender: FDA-Public Use
  Company Number: 2004-FF-00740FF(0)

PATIENT
  Age: 59 Year
  Sex: Male

DRUGS (2)
  1. VIRAMUNE [Suspect]
     Indication: HIV INFECTION
     Dosage: 400 MG (200 MG)
     Route: 048
     Dates: start: 20041115, end: 20041214
  2. COMBIVIR [Concomitant]

REACTIONS (4)
  - ANGIONEUROTIC OEDEMA [None]
  - CONJUNCTIVITIS [None]
  - DYSPNOEA EXERTIONAL [None]
  - NAUSEA [None]
